FAERS Safety Report 6225590-8 (Version None)
Quarter: 2009Q2

REPORT INFORMATION
  Report Type: 
  Country: None (occurrence: None)
  Receive Date: 20090612
  Receipt Date: 20090415
  Transmission Date: 20091009
  Serious: Yes (Other)
  Sender: FDA-Public Use
  Company Number: US-ABBOTT-09P-163-0570273-00

PATIENT
  Sex: Male
  Weight: 58.112 kg

DRUGS (6)
  1. HUMIRA [Suspect]
     Indication: RHEUMATOID ARTHRITIS
     Route: 058
     Dates: start: 20070101, end: 20090301
  2. HYDROXYCHLOROQUINE SULFATE [Concomitant]
     Indication: RHEUMATOID ARTHRITIS
  3. ALLOPURINOL [Concomitant]
     Indication: GOUT
  4. LASIX [Concomitant]
     Indication: OEDEMA PERIPHERAL
  5. VERALIN [Concomitant]
     Indication: HYPERTENSION
  6. UNKNOWN INHALER [Concomitant]
     Indication: ASTHMA

REACTIONS (3)
  - LIP ULCERATION [None]
  - LUPUS-LIKE SYNDROME [None]
  - URINARY TRACT INFECTION [None]
